FAERS Safety Report 9463906 (Version 1)
Quarter: 2013Q3

REPORT INFORMATION
  Report Type: Spontaneous
  Country: JP (occurrence: JP)
  Receive Date: 20130819
  Receipt Date: 20130819
  Transmission Date: 20140515
  Serious: Yes (Death, Other)
  Sender: FDA-Public Use
  Company Number: JP-GENZYME-THYM-1004010

PATIENT
  Age: 21 Year
  Sex: Female
  Weight: 43 kg

DRUGS (8)
  1. THYMOGLOBULINE [Suspect]
     Indication: INTESTINE TRANSPLANT REJECTION
     Dosage: 1.5 UNK, UNK
     Route: 065
     Dates: start: 20110325, end: 20110329
  2. THYMOGLOBULINE [Suspect]
     Dosage: 2.6 UNK, UNK
     Route: 065
     Dates: start: 20111209, end: 20111218
  3. SOLU MEDROL [Suspect]
     Indication: PRODUCT USED FOR UNKNOWN INDICATION
     Dosage: UNK (DURING OPERATION AND AFTER TRANSPLANTATION)
     Route: 065
     Dates: start: 20110829
  4. SOLU MEDROL [Suspect]
     Dosage: UNK
     Route: 065
     Dates: start: 20111209, end: 20111217
  5. SOLU MEDROL [Suspect]
     Dosage: UNK (MAINTENANCE)
     Route: 065
  6. PROGRAF [Suspect]
     Indication: PRODUCT USED FOR UNKNOWN INDICATION
     Dosage: UNK (MAINTENANCE)
     Route: 065
  7. PROGRAF [Suspect]
     Dosage: UNK
     Route: 065
     Dates: start: 20110829
  8. CORTICOSTEROID NOS [Concomitant]
     Indication: TRANSPLANT REJECTION
     Dosage: UNK
     Route: 065
     Dates: start: 201103

REACTIONS (4)
  - Intestine transplant rejection [Not Recovered/Not Resolved]
  - Gastrointestinal necrosis [Fatal]
  - Lymphopenia [Not Recovered/Not Resolved]
  - Device related sepsis [Fatal]
